FAERS Safety Report 6160972-4 (Version None)
Quarter: 2009Q2

REPORT INFORMATION
  Report Type: 
  Country: None (occurrence: None)
  Receive Date: 20090420
  Receipt Date: 20090410
  Transmission Date: 20091009
  Serious: Yes (Other)
  Sender: FDA-Public Use
  Company Number: US-AMGEN-QUU340527

PATIENT
  Sex: Male
  Weight: 81.7 kg

DRUGS (3)
  1. ENBREL [Suspect]
     Indication: PSORIATIC ARTHROPATHY
     Route: 058
     Dates: start: 20060201
  2. PROTONIX [Concomitant]
     Route: 048
  3. PROVENTIL [Concomitant]
     Route: 055

REACTIONS (4)
  - ENTEROCOLITIS INFECTIOUS [None]
  - GASTROENTERITIS VIRAL [None]
  - HYPERCHOLESTEROLAEMIA [None]
  - RECTAL HAEMORRHAGE [None]
